FAERS Safety Report 19181702 (Version 2)
Quarter: 2021Q2

REPORT INFORMATION
  Report Type: Spontaneous
  Country: CH (occurrence: CH)
  Receive Date: 20210426
  Receipt Date: 20210526
  Transmission Date: 20210717
  Serious: Yes (Other)
  Sender: FDA-Public Use
  Company Number: CH-ELI_LILLY_AND_COMPANY-CH202104007344

PATIENT
  Age: 60 Year
  Sex: Male

DRUGS (1)
  1. TALTZ [Suspect]
     Active Substance: IXEKIZUMAB
     Indication: PSORIATIC ARTHROPATHY
     Dosage: UNK UNK, UNKNOWN
     Route: 065
     Dates: start: 2016

REACTIONS (1)
  - Chronic lymphocytic leukaemia [Unknown]
